FAERS Safety Report 5842224-2 (Version None)
Quarter: 2008Q3

REPORT INFORMATION
  Report Type: 
  Country: None (occurrence: None)
  Receive Date: 20080812
  Receipt Date: 20080812
  Transmission Date: 20090109
  Serious: Yes (Other)
  Sender: FDA-Public Use
  Company Number: US-PURDUE-USA_2008_0034187

PATIENT
  Age: 2 Year
  Sex: Male

DRUGS (1)
  1. OXYCODONE HCL [Suspect]
     Indication: DRUG EXPOSURE VIA BREAST MILK
     Route: 063
     Dates: start: 20070101

REACTIONS (4)
  - DRUG EXPOSURE VIA BREAST MILK [None]
  - EMOTIONAL DISORDER OF CHILDHOOD [None]
  - GROWTH RETARDATION [None]
  - LETHARGY [None]
